FAERS Safety Report 7271328-5 (Version None)
Quarter: 2011Q1

REPORT INFORMATION
  Report Type: 
  Country: None (occurrence: None)
  Receive Date: 20110203
  Receipt Date: 20110120
  Transmission Date: 20110831
  Serious: No
  Sender: FDA-Public Use
  Company Number: US-BIOGENIDEC-2011BI002313

PATIENT
  Age: 42 Year
  Sex: Female

DRUGS (4)
  1. TYSABRI [Suspect]
     Route: 042
     Dates: start: 20101130
  2. TYSABRI [Suspect]
     Indication: MULTIPLE SCLEROSIS
     Route: 042
     Dates: start: 20050216
  3. NORTRYPTILINE [Concomitant]
     Indication: DEPRESSION
  4. AVONEX [Concomitant]
     Indication: MULTIPLE SCLEROSIS
     Route: 030
     Dates: start: 20040329, end: 20050701

REACTIONS (5)
  - MUSCULAR WEAKNESS [None]
  - SENSATION OF HEAVINESS [None]
  - PARAESTHESIA [None]
  - HYPOAESTHESIA [None]
  - HEADACHE [None]
